FAERS Safety Report 16902633 (Version 1)
Quarter: 2019Q4

REPORT INFORMATION
  Report Type: Other
  Country: US (occurrence: US)
  Receive Date: 20191010
  Receipt Date: 20191010
  Transmission Date: 20200122
  Serious: Yes (Life-Threatening, Other)
  Sender: FDA-Public Use
  Company Number: US-GLAND PHARMA LIMITED-2075501

PATIENT
  Age: 78 Year
  Sex: Female

DRUGS (1)
  1. TRANEXAMIC ACID. [Suspect]
     Active Substance: TRANEXAMIC ACID
     Indication: HIP ARTHROPLASTY
     Route: 037

REACTIONS (5)
  - Status epilepticus [Recovered/Resolved]
  - Product appearance confusion [Unknown]
  - Wrong product administered [Unknown]
  - Cognitive disorder [Unknown]
  - Incorrect route of product administration [Recovered/Resolved]
